FAERS Safety Report 18572266 (Version 2)
Quarter: 2021Q1

REPORT INFORMATION
  Report Type: Other
  Country: US (occurrence: US)
  Receive Date: 20201203
  Receipt Date: 20210115
  Transmission Date: 20210419
  Serious: No
  Sender: FDA-Public Use
  Company Number: US-ROCHE-2684662

PATIENT
  Sex: Female

DRUGS (1)
  1. OCREVUS [Suspect]
     Active Substance: OCRELIZUMAB
     Indication: MULTIPLE SCLEROSIS
     Dosage: PRESCRIBED WITH IV OCRELIZUMAB, 300 MG EVERY 2 WEEKS AND 600 MG EVERY 6 MONTH?DATE OF TREATMENT: 29/
     Route: 042

REACTIONS (2)
  - Illness [Unknown]
  - COVID-19 [Unknown]
